FAERS Safety Report 14589964 (Version 2)
Quarter: 2018Q2

REPORT INFORMATION
  Report Type: Spontaneous
  Country: FR (occurrence: FR)
  Receive Date: 20180302
  Receipt Date: 20180617
  Transmission Date: 20180711
  Serious: Yes (Other)
  Sender: FDA-Public Use
  Company Number: FR-AMGEN-FRASP2018027961

PATIENT
  Age: 50 Year
  Sex: Male

DRUGS (1)
  1. ENBREL [Suspect]
     Active Substance: ETANERCEPT
     Indication: PSORIATIC ARTHROPATHY
     Dosage: 1 INJECTION EVERY 10 DAYS
     Route: 065

REACTIONS (5)
  - Immune system disorder [Unknown]
  - Helicobacter infection [Unknown]
  - Neutrophil count decreased [Unknown]
  - Product use issue [Unknown]
  - Polyp [Unknown]
